FAERS Safety Report 25486633 (Version 3)
Quarter: 2025Q3

REPORT INFORMATION
  Report Type: Report from Study
  Country: CA (occurrence: CA)
  Receive Date: 20250627
  Receipt Date: 20250905
  Transmission Date: 20251021
  Serious: Yes (Other)
  Sender: CELLTRION
  Company Number: CA-CELLTRION INC.-2024CA028071

PATIENT

DRUGS (2)
  1. USTEKINUMAB [Suspect]
     Active Substance: USTEKINUMAB
     Indication: Crohn^s disease
     Dosage: 90 MG Q 4 WEEKS, THERAPY DURATION: INDEFINITE, 1 EVERY 4 WEEKS
     Route: 058
     Dates: start: 20241105
  2. USTEKINUMAB [Suspect]
     Active Substance: USTEKINUMAB
     Dosage: 90 MG EVERY 4 WEEKS (THERAPY DURATION: IN PROGRESS), 1 EVERY 4 WEEKS
     Route: 058
     Dates: start: 20241127

REACTIONS (9)
  - Dysphagia [Recovered/Resolved]
  - Cough [Recovered/Resolved]
  - Pharyngeal swelling [Recovered/Resolved]
  - Pneumonia [Recovered/Resolved]
  - Infection [Recovered/Resolved]
  - Intentional dose omission [Recovered/Resolved]
  - Off label use [Recovered/Resolved]
  - Streptococcal infection [Unknown]
  - Intentional dose omission [Unknown]

NARRATIVE: CASE EVENT DATE: 20241105
